FAERS Safety Report 20899550 (Version 2)
Quarter: 2022Q3

REPORT INFORMATION
  Report Type: Report from Study
  Country: MX (occurrence: MX)
  Receive Date: 20220601
  Receipt Date: 20220708
  Transmission Date: 20221027
  Serious: Yes (Other)
  Sender: FDA-Public Use
  Company Number: MX-NOVARTISPH-NVSC2022MX125610

PATIENT
  Sex: Female

DRUGS (2)
  1. EXFORGE [Suspect]
     Active Substance: AMLODIPINE BESYLATE\VALSARTAN
     Indication: Product used for unknown indication
     Dosage: UNK (5/160 MG)
     Route: 065
  2. EXFORGE [Suspect]
     Active Substance: AMLODIPINE BESYLATE\VALSARTAN
     Dosage: UNK
     Route: 065

REACTIONS (2)
  - Deafness [Unknown]
  - Speech disorder [Unknown]
